FAERS Safety Report 25546401 (Version 3)
Quarter: 2025Q3

REPORT INFORMATION
  Report Type: Spontaneous
  Country: US (occurrence: US)
  Receive Date: 20250713
  Receipt Date: 20250806
  Transmission Date: 20251021
  Serious: Yes (Hospitalization)
  Sender: SANOFI AVENTIS
  Company Number: US-SA-2025SA195101

PATIENT
  Age: 65 Year
  Sex: Female

DRUGS (2)
  1. REZUROCK [Suspect]
     Active Substance: BELUMOSUDIL
     Indication: Complications of transplanted lung
     Dosage: 200 MG
     Route: 048
     Dates: start: 20250717
  2. REZUROCK [Suspect]
     Active Substance: BELUMOSUDIL
     Indication: Bronchiolitis obliterans syndrome
     Dosage: 200 MG
     Route: 048

REACTIONS (3)
  - Condition aggravated [Unknown]
  - Dysphonia [Unknown]
  - Product use in unapproved indication [Unknown]

NARRATIVE: CASE EVENT DATE: 20250101
